FAERS Safety Report 6938395-7 (Version None)
Quarter: 2010Q3

REPORT INFORMATION
  Report Type: 
  Country: None (occurrence: None)
  Receive Date: 20100824
  Receipt Date: 20100813
  Transmission Date: 20110219
  Serious: Yes (Hospitalization)
  Sender: FDA-Public Use
  Company Number: FR-PFIZER INC-2010104551

PATIENT
  Age: 72 Year
  Sex: Female
  Weight: 55 kg

DRUGS (5)
  1. ATARAX [Suspect]
     Indication: ANXIETY
     Dosage: 25 MG, DAILY
     Route: 048
  2. ATARAX [Suspect]
     Indication: SLEEP DISORDER
     Dosage: 200 MG, DAILY
     Route: 048
     Dates: start: 20100630, end: 20100630
  3. LEVOTHYROXINE SODIUM [Suspect]
     Indication: HYPOTHYROIDISM
     Dosage: 37 UG, DAILY
     Route: 048
  4. LYSANXIA [Concomitant]
     Indication: ANXIETY
     Dosage: 10 MG, 3X/DAY
  5. STILNOX [Concomitant]
     Indication: ANXIETY
     Dosage: 1 DF, 1X/DAY

REACTIONS (7)
  - BLOOD CREATINE PHOSPHOKINASE INCREASED [None]
  - CONFUSIONAL STATE [None]
  - CONVULSION [None]
  - DYSARTHRIA [None]
  - MENTAL DISORDER [None]
  - PYREXIA [None]
  - TREMOR [None]
